FAERS Safety Report 16928875 (Version 1)
Quarter: 2019Q4

REPORT INFORMATION
  Report Type: Spontaneous
  Country: US (occurrence: US)
  Receive Date: 20191017
  Receipt Date: 20191017
  Transmission Date: 20200122
  Serious: No
  Sender: FDA-Public Use
  Company Number: US-AMGEN INC.-USASP2019169401

PATIENT

DRUGS (1)
  1. AIMOVIG [Suspect]
     Active Substance: ERENUMAB-AOOE
     Indication: PRODUCT USED FOR UNKNOWN INDICATION
     Dosage: UNK
     Route: 065

REACTIONS (14)
  - Toothache [Unknown]
  - Chest pain [Unknown]
  - Vomiting [Unknown]
  - Nausea [Unknown]
  - Pain in jaw [Unknown]
  - Neuralgia [Unknown]
  - Renal pain [Unknown]
  - Musculoskeletal stiffness [Unknown]
  - Myalgia [Unknown]
  - Rhinalgia [Unknown]
  - Arthralgia [Unknown]
  - Eye pain [Unknown]
  - Headache [Unknown]
  - Back pain [Unknown]
